FAERS Safety Report 11509738 (Version 1)
Quarter: 2015Q3

REPORT INFORMATION
  Report Type: Spontaneous
  Country: US (occurrence: US)
  Receive Date: 20150915
  Receipt Date: 20150915
  Transmission Date: 20151125
  Serious: No
  Sender: FDA-Public Use
  Company Number: US-JNJFOC-20150601000

PATIENT
  Age: 30 Year
  Sex: Female

DRUGS (6)
  1. TYLENOL [Suspect]
     Active Substance: ACETAMINOPHEN
     Indication: NAUSEA
     Route: 065
     Dates: start: 20150528
  2. TYLENOL [Suspect]
     Active Substance: ACETAMINOPHEN
     Indication: HYPOAESTHESIA
     Route: 065
     Dates: start: 20150528
  3. TYLENOL [Suspect]
     Active Substance: ACETAMINOPHEN
     Indication: ASTHENIA
     Route: 065
     Dates: start: 20150528
  4. STELARA [Concomitant]
     Active Substance: USTEKINUMAB
     Indication: PSORIASIS
     Route: 058
     Dates: start: 201503
  5. TYLENOL [Suspect]
     Active Substance: ACETAMINOPHEN
     Indication: INFLUENZA LIKE ILLNESS
     Route: 065
     Dates: start: 20150528
  6. STELARA [Concomitant]
     Active Substance: USTEKINUMAB
     Indication: INFLAMMATORY BOWEL DISEASE
     Route: 058
     Dates: start: 201503

REACTIONS (2)
  - Drug ineffective for unapproved indication [Unknown]
  - Off label use [Unknown]

NARRATIVE: CASE EVENT DATE: 20150528
